FAERS Safety Report 8596166-2 (Version None)
Quarter: 2012Q3

REPORT INFORMATION
  Report Type: 
  Country: None (occurrence: None)
  Receive Date: 20120815
  Receipt Date: 20120808
  Transmission Date: 20120928
  Serious: Yes (Other)
  Sender: FDA-Public Use
  Company Number: AU-VIIV HEALTHCARE LIMITED-A0959010B

PATIENT
  Sex: Female
  Weight: 1.9 kg

DRUGS (2)
  1. EPZICOM [Suspect]
     Indication: ANTIRETROVIRAL THERAPY
     Route: 064
  2. KALETRA [Suspect]
     Indication: ANTIRETROVIRAL THERAPY
     Route: 064

REACTIONS (2)
  - PREMATURE BABY [None]
  - FOETAL EXPOSURE DURING PREGNANCY [None]
